FAERS Safety Report 23441074 (Version 1)
Quarter: 2024Q1

REPORT INFORMATION
  Report Type: Spontaneous
  Country: US (occurrence: US)
  Receive Date: 20240125
  Receipt Date: 20240125
  Transmission Date: 20240409
  Serious: Yes (Other)
  Sender: FDA-Public Use
  Company Number: US-SUN PHARMACEUTICAL INDUSTRIES LTD-2024R1-428615

PATIENT
  Age: 35 Year
  Sex: Male

DRUGS (2)
  1. ATENOLOL [Suspect]
     Active Substance: ATENOLOL
     Indication: Staphylococcal bacteraemia
     Dosage: UNK
     Route: 065
  2. METHIMAZOLE [Suspect]
     Active Substance: METHIMAZOLE
     Indication: Staphylococcal bacteraemia
     Dosage: UNK
     Route: 065

REACTIONS (5)
  - Febrile infection [Unknown]
  - Therapy non-responder [Unknown]
  - Thyroiditis [Unknown]
  - Tachypnoea [Unknown]
  - Tachycardia [Unknown]
